FAERS Safety Report 4263450-2 (Version None)
Quarter: 2004Q1

REPORT INFORMATION
  Report Type: 
  Country: None (occurrence: None)
  Receive Date: 20040104
  Receipt Date: 20040104
  Transmission Date: 20041129
  Serious: Yes (Life-Threatening, Hospitalization, Disabling, Other)
  Sender: FDA-Public Use
  Company Number: None

PATIENT
  Age: 34 Year
  Sex: Female
  Weight: 63.5036 kg

DRUGS (2)
  1. CLOMID [Suspect]
     Indication: INFERTILITY FEMALE
     Dates: start: 19900309, end: 19920801
  2. PROGESTERONE [Suspect]
     Indication: INFERTILITY FEMALE
     Dates: start: 19900309, end: 19920801

REACTIONS (11)
  - ABDOMINAL DISTENSION [None]
  - CRYING [None]
  - DEPRESSION [None]
  - DRUG DEPENDENCE [None]
  - HALLUCINATION [None]
  - HEADACHE [None]
  - HOMICIDAL IDEATION [None]
  - INSOMNIA [None]
  - MENTAL DISORDER [None]
  - PANIC ATTACK [None]
  - SUICIDAL IDEATION [None]
